FAERS Safety Report 16536739 (Version 1)
Quarter: 2019Q3

REPORT INFORMATION
  Report Type: Spontaneous
  Country: US (occurrence: US)
  Receive Date: 20190706
  Receipt Date: 20190706
  Transmission Date: 20191004
  Serious: No
  Sender: FDA-Public Use
  Company Number: US-TEVA-2019-US-1065927

PATIENT
  Sex: Male

DRUGS (1)
  1. SUCRALFATE TABLET [Suspect]
     Active Substance: SUCRALFATE
     Indication: GASTROOESOPHAGEAL REFLUX DISEASE
     Dosage: FORM STRENGTH: 1, UNIT WAS NOT REPORTED, PRESCRIBED TO TAKE BREAKFAST AND DINNER
     Route: 065

REACTIONS (3)
  - Constipation [Recovered/Resolved]
  - Product use in unapproved indication [Unknown]
  - Off label use [Unknown]
